FAERS Safety Report 5195933-5 (Version None)
Quarter: 2006Q4

REPORT INFORMATION
  Report Type: 
  Country: None (occurrence: None)
  Receive Date: 20061227
  Receipt Date: 20061227
  Transmission Date: 20070319
  Serious: Yes (Other)
  Sender: FDA-Public Use
  Company Number: None

PATIENT
  Age: 54 Year
  Sex: Male
  Weight: 62.1428 kg

DRUGS (1)
  1. ONXOL 300 MG IVAX [Suspect]
     Indication: LUNG NEOPLASM MALIGNANT
     Dosage: 107 EVERY THREE WEEKS IV
     Route: 042
     Dates: start: 20061205, end: 20061226

REACTIONS (2)
  - DYSPNOEA [None]
  - ERYTHEMA [None]
